FAERS Safety Report 8054018-0 (Version None)
Quarter: 2012Q1

REPORT INFORMATION
  Report Type: 
  Country: None (occurrence: None)
  Receive Date: 20120118
  Receipt Date: 20120113
  Transmission Date: 20120608
  Serious: Yes (Death)
  Sender: FDA-Public Use
  Company Number: US-VERTEX PHARMACEUTICALS INC.-AE-2012-000860

PATIENT
  Sex: Male

DRUGS (3)
  1. PEGASYS [Concomitant]
     Indication: HEPATITIS C
     Route: 058
  2. INCIVEK [Suspect]
     Indication: HEPATITIS C
     Route: 048
  3. RIBASPERE [Concomitant]
     Indication: HEPATITIS C
     Route: 048

REACTIONS (1)
  - DEATH [None]
